FAERS Safety Report 14605660 (Version 1)
Quarter: 2018Q1

REPORT INFORMATION
  Report Type: Spontaneous
  Country: US (occurrence: US)
  Receive Date: 20180306
  Receipt Date: 20180306
  Transmission Date: 20180509
  Serious: No
  Sender: FDA-Public Use
  Company Number: US-INTERCEPT-PMOCA2018000113

PATIENT

DRUGS (1)
  1. OCALIVA [Suspect]
     Active Substance: OBETICHOLIC ACID
     Indication: PRIMARY BILIARY CHOLANGITIS
     Dosage: 5 MG, QD
     Route: 048
     Dates: start: 20170907

REACTIONS (4)
  - Pruritus [Unknown]
  - Hyperhidrosis [Unknown]
  - Memory impairment [Unknown]
  - Somnolence [Unknown]

NARRATIVE: CASE EVENT DATE: 20171219
